FAERS Safety Report 23976625 (Version 1)
Quarter: 2024Q2

REPORT INFORMATION
  Report Type: Spontaneous
  Country: FR (occurrence: FR)
  Receive Date: 20240614
  Receipt Date: 20240614
  Transmission Date: 20240716
  Serious: Yes (Hospitalization, Disabling, Other)
  Sender: FDA-Public Use
  Company Number: FR-EMA-DD-20240319-7483181-121603

PATIENT
  Age: 53 Year
  Sex: Female

DRUGS (35)
  1. LEVETIRACETAM [Suspect]
     Active Substance: LEVETIRACETAM
     Indication: Epilepsy
     Dosage: UNK
     Route: 048
  2. LEVETIRACETAM [Suspect]
     Active Substance: LEVETIRACETAM
     Dosage: UNK
     Route: 065
  3. NOMEGESTROL ACETATE [Suspect]
     Active Substance: NOMEGESTROL ACETATE
     Indication: Product used for unknown indication
     Dosage: UNK
     Route: 048
     Dates: start: 20190221
  4. NOMEGESTROL [Suspect]
     Active Substance: NOMEGESTROL
     Indication: Heavy menstrual bleeding
     Route: 048
     Dates: start: 20190318
  5. NOMEGESTROL [Suspect]
     Active Substance: NOMEGESTROL
     Indication: Intermenstrual bleeding
  6. NOMEGESTROL ACETATE [Suspect]
     Active Substance: NOMEGESTROL ACETATE
     Indication: Product used for unknown indication
     Dosage: UNK
     Route: 048
     Dates: start: 20210630
  7. PROMEGESTONE [Suspect]
     Active Substance: PROMEGESTONE
     Indication: Product used for unknown indication
     Dosage: UNK
     Route: 048
     Dates: start: 20190221
  8. PROMEGESTONE [Suspect]
     Active Substance: PROMEGESTONE
     Dosage: UNK
     Route: 048
     Dates: start: 20210409
  9. PROMEGESTONE [Suspect]
     Active Substance: PROMEGESTONE
     Dosage: UNK
     Route: 048
     Dates: start: 201911
  10. NOMEGESTROL [Suspect]
     Active Substance: NOMEGESTROL
     Indication: Heavy menstrual bleeding
     Route: 048
     Dates: start: 20190516
  11. NOMEGESTROL [Suspect]
     Active Substance: NOMEGESTROL
     Dosage: UNK
     Route: 048
     Dates: start: 20190806
  12. NOMEGESTROL [Suspect]
     Active Substance: NOMEGESTROL
     Dosage: UNK
     Route: 048
     Dates: start: 20190711
  13. NOMEGESTROL [Suspect]
     Active Substance: NOMEGESTROL
     Dosage: UNK
     Route: 048
     Dates: start: 20190411
  14. NOMEGESTROL ACETATE [Suspect]
     Active Substance: NOMEGESTROL ACETATE
     Indication: Intermenstrual bleeding
     Dosage: UNK
     Route: 048
     Dates: start: 20180215
  15. NOMEGESTROL ACETATE [Suspect]
     Active Substance: NOMEGESTROL ACETATE
     Dosage: UNK
     Route: 048
     Dates: start: 20121108
  16. KEPPRA [Suspect]
     Active Substance: LEVETIRACETAM
     Indication: Epilepsy
     Dosage: TWO KEPPRA TABLETS PER DAY
     Route: 065
     Dates: start: 20220626
  17. NOMEGESTROL ACETATE [Suspect]
     Active Substance: NOMEGESTROL ACETATE
     Indication: Intermenstrual bleeding
     Dosage: UNK
     Route: 048
     Dates: start: 20130105
  18. NOMEGESTROL ACETATE [Suspect]
     Active Substance: NOMEGESTROL ACETATE
     Dosage: UNK
     Route: 048
     Dates: start: 20151221
  19. NOMEGESTROL ACETATE [Suspect]
     Active Substance: NOMEGESTROL ACETATE
     Dosage: UNK
     Route: 048
     Dates: start: 20160713
  20. NOMEGESTROL ACETATE [Suspect]
     Active Substance: NOMEGESTROL ACETATE
     Dosage: UNK
     Route: 048
     Dates: start: 20131204
  21. NOMEGESTROL ACETATE [Suspect]
     Active Substance: NOMEGESTROL ACETATE
     Dosage: UNK
     Route: 048
     Dates: start: 20141112
  22. NOMEGESTROL ACETATE [Suspect]
     Active Substance: NOMEGESTROL ACETATE
     Dosage: UNK
     Route: 048
     Dates: start: 20120810
  23. NOMEGESTROL ACETATE [Suspect]
     Active Substance: NOMEGESTROL ACETATE
     Dosage: UNK
     Route: 048
     Dates: start: 20150603
  24. NOMEGESTROL ACETATE [Suspect]
     Active Substance: NOMEGESTROL ACETATE
     Indication: Intermenstrual bleeding
     Route: 048
     Dates: start: 20210522
  25. NOMEGESTROL ACETATE [Suspect]
     Active Substance: NOMEGESTROL ACETATE
     Dosage: UNK
     Route: 048
     Dates: start: 20210409
  26. NOMEGESTROL ACETATE [Suspect]
     Active Substance: NOMEGESTROL ACETATE
     Dosage: UNK
     Route: 048
     Dates: start: 20210113
  27. NOMEGESTROL ACETATE [Suspect]
     Active Substance: NOMEGESTROL ACETATE
     Dosage: UNK
     Route: 048
     Dates: start: 20201216
  28. NOMEGESTROL ACETATE [Suspect]
     Active Substance: NOMEGESTROL ACETATE
     Dosage: UNK
     Route: 048
     Dates: start: 20201118
  29. NOMEGESTROL ACETATE [Suspect]
     Active Substance: NOMEGESTROL ACETATE
     Dosage: UNK
     Route: 048
     Dates: start: 20210624
  30. NOMEGESTROL ACETATE [Suspect]
     Active Substance: NOMEGESTROL ACETATE
     Dosage: UNK
     Route: 048
     Dates: start: 20201017
  31. NOMEGESTROL ACETATE [Suspect]
     Active Substance: NOMEGESTROL ACETATE
     Dosage: UNK
     Route: 048
     Dates: start: 20200925
  32. NOMEGESTROL ACETATE [Suspect]
     Active Substance: NOMEGESTROL ACETATE
     Dosage: UNK
     Route: 048
     Dates: start: 20210210
  33. NOMEGESTROL ACETATE [Suspect]
     Active Substance: NOMEGESTROL ACETATE
     Dosage: UNK
     Route: 048
     Dates: start: 20210312
  34. CHLORMADINONE ACETATE [Suspect]
     Active Substance: CHLORMADINONE ACETATE
     Indication: Intermenstrual bleeding
     Dosage: UNK
     Route: 048
     Dates: start: 20101101, end: 201012
  35. NOMEGESTROL ACETATE [Suspect]
     Active Substance: NOMEGESTROL ACETATE
     Indication: Product used for unknown indication
     Route: 048
     Dates: start: 201911

REACTIONS (11)
  - Meningioma [Recovered/Resolved with Sequelae]
  - Cognitive disorder [Unknown]
  - Impaired quality of life [Unknown]
  - Malaise [Unknown]
  - Oedema [Unknown]
  - Asthenia [Not Recovered/Not Resolved]
  - Reading disorder [Unknown]
  - Disturbance in attention [Unknown]
  - Language disorder [Not Recovered/Not Resolved]
  - Aphasia [Unknown]
  - Mental disorder [Unknown]

NARRATIVE: CASE EVENT DATE: 20210906
